FAERS Safety Report 11389400 (Version 1)
Quarter: 2015Q3

REPORT INFORMATION
  Report Type: Spontaneous
  Country: FR (occurrence: FR)
  Receive Date: 20150817
  Receipt Date: 20150817
  Transmission Date: 20151125
  Serious: Yes (Death, Other)
  Sender: FDA-Public Use
  Company Number: FR-GUERBET LLC-1041149

PATIENT
  Age: 62 Year
  Sex: Male

DRUGS (14)
  1. MEROPENEM. [Concomitant]
     Active Substance: MEROPENEM
     Route: 041
     Dates: start: 20150526, end: 20150527
  2. LINEZOLID. [Concomitant]
     Active Substance: LINEZOLID
     Route: 041
     Dates: start: 20150601, end: 20150604
  3. CORDARONE [Concomitant]
     Active Substance: AMIODARONE HYDROCHLORIDE
     Route: 042
     Dates: start: 20150515, end: 20150515
  4. GENTAMICINE [Concomitant]
     Active Substance: GENTAMICIN
     Route: 041
     Dates: start: 20150519, end: 20150519
  5. LINEZOLID. [Concomitant]
     Active Substance: LINEZOLID
     Route: 041
     Dates: start: 20150526, end: 20150527
  6. BACTRIM [Concomitant]
     Active Substance: SULFAMETHOXAZOLE\TRIMETHOPRIM
     Route: 048
     Dates: start: 20150511, end: 20150512
  7. PIPERACILLINE TAZOBACTAM [Concomitant]
     Active Substance: PIPERACILLIN SODIUM\TAZOBACTAM SODIUM
     Route: 042
     Dates: start: 20150519, end: 20150523
  8. INEXIUM(ESOMEPRAZOLE) [Concomitant]
     Route: 042
     Dates: start: 20150515, end: 20150515
  9. HEXABRIX [Suspect]
     Active Substance: IOXAGLATE MEGLUMINE\IOXAGLATE SODIUM
     Indication: ARTERIOGRAM CORONARY
     Route: 042
     Dates: start: 20150515, end: 20150515
  10. CORDARONE [Concomitant]
     Active Substance: AMIODARONE HYDROCHLORIDE
     Route: 042
     Dates: start: 20150515, end: 20150515
  11. GENTAMICINE [Concomitant]
     Active Substance: GENTAMICIN
     Route: 041
     Dates: start: 20150526, end: 20150527
  12. GENTAMICINE [Concomitant]
     Active Substance: GENTAMICIN
     Route: 041
     Dates: start: 20150601, end: 20150604
  13. MEROPENEM. [Concomitant]
     Active Substance: MEROPENEM
     Route: 041
     Dates: start: 20150601, end: 20150604
  14. INEXIUM(ESOMEPRAZOLE) [Concomitant]
     Route: 048
     Dates: start: 20150515, end: 20150714

REACTIONS (1)
  - Drug reaction with eosinophilia and systemic symptoms [Fatal]

NARRATIVE: CASE EVENT DATE: 20150604
